FAERS Safety Report 11380602 (Version 2)
Quarter: 2016Q3

REPORT INFORMATION
  Report Type: Spontaneous
  Country: US (occurrence: US)
  Receive Date: 20150814
  Receipt Date: 20160907
  Transmission Date: 20161109
  Serious: Yes (Other)
  Sender: FDA-Public Use
  Company Number: US-JNJFOC-20150712793

PATIENT
  Age: 44 Year
  Sex: Male
  Weight: 55.34 kg

DRUGS (1)
  1. LEVAQUIN [Suspect]
     Active Substance: LEVOFLOXACIN
     Indication: SKIN INFECTION
     Dosage: 750 MG ONCE A DAY AND 500 MG DAY 2-10
     Route: 048
     Dates: start: 200608, end: 200609

REACTIONS (4)
  - Neuropathy peripheral [Not Recovered/Not Resolved]
  - Musculoskeletal disorder [Unknown]
  - Nervous system disorder [Unknown]
  - Presyncope [Unknown]

NARRATIVE: CASE EVENT DATE: 200609
